FAERS Safety Report 24351431 (Version 1)
Quarter: 2024Q3

REPORT INFORMATION
  Report Type: Report from Study
  Country: CN (occurrence: CN)
  Receive Date: 20240923
  Receipt Date: 20240923
  Transmission Date: 20241017
  Serious: No
  Sender: ROCHE
  Company Number: CN-ROCHE-3546023

PATIENT

DRUGS (2)
  1. TRASTUZUMAB [Suspect]
     Active Substance: TRASTUZUMAB
     Indication: HER2 positive breast cancer
     Dosage: INITIALLY ADMINISTERED AT 8 MG/KG, FOLLOWED BY INTRAVENOUS DRIP OF 6 MG/KG,
     Route: 041
  2. FULVESTRANT [Suspect]
     Active Substance: FULVESTRANT
     Indication: HER2 positive breast cancer
     Dosage: ONE INJECTION ON DAY 1 AND DAY 15 OF THE FIRST CYCLE FOR TREATMENT
     Route: 065

REACTIONS (4)
  - Pyrexia [Unknown]
  - Asthenia [Unknown]
  - Hepatic function abnormal [Unknown]
  - Bone pain [Unknown]
